FAERS Safety Report 23449858 (Version 3)
Quarter: 2024Q1

REPORT INFORMATION
  Report Type: Spontaneous
  Country: DE (occurrence: DE)
  Receive Date: 20240129
  Receipt Date: 20240307
  Transmission Date: 20240410
  Serious: Yes (Death, Life-Threatening, Hospitalization, Other)
  Sender: FDA-Public Use
  Company Number: DE-GILEAD-2023-0656580

PATIENT
  Sex: Female
  Weight: 56.6 kg

DRUGS (30)
  1. PEMETREXED [Suspect]
     Active Substance: PEMETREXED
     Indication: Non-small cell lung cancer metastatic
     Dosage: 950 MILLIGRAM
     Route: 042
     Dates: start: 20231228, end: 20231228
  2. PEMETREXED [Suspect]
     Active Substance: PEMETREXED
     Dosage: 950 MILLIGRAM
     Route: 042
     Dates: start: 20231228
  3. CARBOPLATIN [Suspect]
     Active Substance: CARBOPLATIN
     Indication: Non-small cell lung cancer metastatic
     Dosage: 551 MILLIGRAM
     Route: 042
     Dates: start: 20231228, end: 20231228
  4. CARBOPLATIN [Suspect]
     Active Substance: CARBOPLATIN
     Dosage: 551 MILLIGRAM
     Route: 042
     Dates: start: 20231228
  5. PEMBROLIZUMAB [Suspect]
     Active Substance: PEMBROLIZUMAB
     Indication: Non-small cell lung cancer metastatic
     Dosage: 200 MILLIGRAM
     Route: 042
     Dates: start: 20231228, end: 20231228
  6. PEMBROLIZUMAB [Suspect]
     Active Substance: PEMBROLIZUMAB
     Dosage: 200 MILLIGRAM
     Route: 042
     Dates: start: 20231228
  7. ZIMBERELIMAB [Suspect]
     Active Substance: ZIMBERELIMAB
     Indication: Non-small cell lung cancer metastatic
     Dosage: UNK
     Route: 065
  8. ATORVASTATIN [Concomitant]
     Active Substance: ATORVASTATIN
     Indication: Prophylaxis
     Dosage: UNK
     Route: 048
     Dates: start: 2011
  9. CASPOFUNGIN [Concomitant]
     Active Substance: CASPOFUNGIN
     Indication: Systemic candida
     Dosage: UNK
     Route: 042
     Dates: start: 20240109
  10. CERTOPARIN SODIUM [Concomitant]
     Active Substance: CERTOPARIN SODIUM
     Indication: Atrial fibrillation
     Dosage: UNK
     Route: 058
     Dates: start: 20231227
  11. CHOLECALCIFEROL [Concomitant]
     Active Substance: CHOLECALCIFEROL
     Indication: Prophylaxis
     Dosage: UNK
     Route: 048
     Dates: start: 201602
  12. DEXAMETHASONE [Concomitant]
     Active Substance: DEXAMETHASONE
     Indication: Premedication
     Dosage: UNK
     Route: 048
     Dates: start: 20231227
  13. DORZOLAMIDE [Concomitant]
     Active Substance: DORZOLAMIDE
     Indication: Glaucoma
     Dosage: UNK
     Route: 001
     Dates: start: 2004
  14. LEUCOVORIN [Concomitant]
     Active Substance: LEUCOVORIN\LEUCOVORIN CALCIUM
     Indication: Prophylaxis
     Dosage: UNK
     Route: 048
     Dates: start: 20231221
  15. POTASSIUM CHLORIDE [Concomitant]
     Active Substance: POTASSIUM CHLORIDE
     Indication: Hypokalaemia
     Dosage: UNK
     Route: 042
     Dates: start: 20240108
  16. MAGNESIUM [Concomitant]
     Active Substance: MAGNESIUM
     Indication: Atrial fibrillation
     Dosage: UNK
     Route: 042
     Dates: start: 20240109, end: 20240109
  17. MORPHINE [Concomitant]
     Active Substance: MORPHINE
     Indication: Dyspnoea
     Dosage: UNK
     Route: 058
     Dates: start: 20240110
  18. NEBIVOLOL [Concomitant]
     Active Substance: NEBIVOLOL
     Indication: Hypertension
     Dosage: UNK
     Route: 048
     Dates: start: 2018
  19. ONDANSETRON [Concomitant]
     Active Substance: ONDANSETRON
     Indication: Prophylaxis
     Dosage: UNK,  (CYCLE 1-4)
     Route: 042
     Dates: start: 20231228
  20. OXYGEN [Concomitant]
     Active Substance: OXYGEN
     Indication: Dyspnoea
     Dosage: UNK
     Route: 055
     Dates: start: 20240110
  21. PANTOPRAZOLE SODIUM [Concomitant]
     Active Substance: PANTOPRAZOLE SODIUM
     Indication: Prophylaxis
     Dosage: UNK
     Route: 048
     Dates: start: 201111
  22. PIPERACILLIN [Concomitant]
     Active Substance: PIPERACILLIN
     Indication: Prophylaxis
     Dosage: UNK
     Route: 042
     Dates: start: 20231126
  23. PIPERACILLIN [Concomitant]
     Active Substance: PIPERACILLIN
     Indication: Neutropenia
     Dosage: UNK
     Route: 042
     Dates: start: 20231226, end: 20231227
  24. PIPERACILLIN [Concomitant]
     Active Substance: PIPERACILLIN
     Indication: Febrile neutropenia
     Dosage: UNK
     Route: 042
     Dates: start: 20240107
  25. PREDNISONE [Concomitant]
     Active Substance: PREDNISONE
     Indication: Prophylaxis
     Dosage: UNK
     Route: 042
     Dates: start: 20240113
  26. SODIUM [Concomitant]
     Active Substance: SODIUM
     Indication: Dysphagia
     Dosage: UNK
     Route: 042
     Dates: start: 20231226
  27. SODIUM CHLORIDE [Concomitant]
     Active Substance: SODIUM CHLORIDE
     Indication: Dysphagia
     Dosage: UNK
     Route: 042
     Dates: start: 20231226
  28. TAUROLIDINE [Concomitant]
     Active Substance: TAUROLIDINE
     Indication: Systemic candida
     Dosage: UNK
     Route: 042
     Dates: start: 20240109, end: 20240109
  29. AMINO ACIDS\DEXTROSE\ELECTROLYTES NOS\SOYBEAN OIL [Concomitant]
     Active Substance: AMINO ACIDS\DEXTROSE\ELECTROLYTES NOS\SOYBEAN OIL
     Indication: Dysphagia
     Dosage: UNK
     Route: 042
     Dates: start: 20231226
  30. VITAMIN B12 [Concomitant]
     Active Substance: CYANOCOBALAMIN
     Indication: Prophylaxis
     Dosage: UNK
     Route: 058
     Dates: start: 20231221

REACTIONS (7)
  - Respiratory failure [Fatal]
  - Febrile neutropenia [Recovered/Resolved]
  - Neutropenia [Recovered/Resolved]
  - Platelet count decreased [Recovered/Resolved]
  - Renal failure [Not Recovered/Not Resolved]
  - Thrombocytopenia [Recovered/Resolved with Sequelae]
  - Dysphagia [Not Recovered/Not Resolved]

NARRATIVE: CASE EVENT DATE: 20231225
